FAERS Safety Report 13883000 (Version 3)
Quarter: 2017Q4

REPORT INFORMATION
  Report Type: Report from Study
  Country: US (occurrence: US)
  Receive Date: 20170818
  Receipt Date: 20171002
  Transmission Date: 20180320
  Serious: Yes (Hospitalization, Other)
  Sender: FDA-Public Use
  Company Number: US-ACTELION-A-US2015-121284

PATIENT
  Age: 62 Year
  Sex: Male
  Weight: 94.33 kg

DRUGS (7)
  1. MULTIVITAMIN [Concomitant]
     Active Substance: VITAMINS
     Dosage: UNK, QD
  2. OPSUMIT [Suspect]
     Active Substance: MACITENTAN
     Indication: PULMONARY ARTERIAL HYPERTENSION
     Dosage: 10 MG, QD
     Route: 048
     Dates: start: 20150415
  3. FISH OIL [Concomitant]
     Active Substance: FISH OIL
     Dosage: UNK, QD
  4. PERCOCET [Concomitant]
     Active Substance: ACETAMINOPHEN\OXYCODONE HYDROCHLORIDE
     Dosage: 1 TABLET , Q6HRS,PRN
  5. ASPIRIN. [Concomitant]
     Active Substance: ASPIRIN
     Dosage: D
  6. REVATIO [Concomitant]
     Active Substance: SILDENAFIL CITRATE
     Dosage: 20 MG, TID
  7. REMODULIN [Concomitant]
     Active Substance: TREPROSTINIL
     Dosage: 25 NG/KG, PER MIN

REACTIONS (9)
  - Cardiac pacemaker insertion [Recovered/Resolved]
  - Fluid retention [Recovered/Resolved]
  - Swelling [Unknown]
  - Bradycardia [Recovered/Resolved]
  - Treatment noncompliance [Unknown]
  - Oedema [Unknown]
  - Atrioventricular block complete [Recovered/Resolved]
  - Hypopnoea [Unknown]
  - Inadequate diet [Unknown]

NARRATIVE: CASE EVENT DATE: 20150712
